FAERS Safety Report 7174949-3 (Version None)
Quarter: 2010Q4

REPORT INFORMATION
  Report Type: 
  Country: None (occurrence: None)
  Receive Date: 20101220
  Receipt Date: 20100406
  Transmission Date: 20110411
  Serious: No
  Sender: FDA-Public Use
  Company Number: US-AMGEN-TCS404197

PATIENT

DRUGS (2)
  1. ENBREL [Suspect]
     Indication: RHEUMATOID ARTHRITIS
     Dosage: 25 MG, 2 TIMES/WK
     Route: 058
     Dates: start: 20090930
  2. METHOTREXATE [Concomitant]
     Dosage: UNK UNK, UNK

REACTIONS (3)
  - DRUG HYPERSENSITIVITY [None]
  - RESPIRATORY TRACT CONGESTION [None]
  - URTICARIA [None]
